FAERS Safety Report 22152850 (Version 1)
Quarter: 2023Q1

REPORT INFORMATION
  Report Type: Report from Study
  Country: US (occurrence: US)
  Receive Date: 20230329
  Receipt Date: 20230329
  Transmission Date: 20230417
  Serious: Yes (Other)
  Sender: FDA-Public Use
  Company Number: US-APIL-2309843US

PATIENT
  Sex: Female

DRUGS (1)
  1. ATOGEPANT [Suspect]
     Active Substance: ATOGEPANT
     Indication: Migraine
     Dosage: 60 MG, QHS
     Route: 048
     Dates: start: 2022, end: 202301

REACTIONS (4)
  - Loss of consciousness [Unknown]
  - Mass [Unknown]
  - Therapy interrupted [Unknown]
  - Migraine [Unknown]
